FAERS Safety Report 15906848 (Version 1)
Quarter: 2019Q1

REPORT INFORMATION
  Report Type: Spontaneous
  Country: FR (occurrence: FR)
  Receive Date: 20190204
  Receipt Date: 20190204
  Transmission Date: 20190417
  Serious: Yes (Hospitalization, Other)
  Sender: FDA-Public Use
  Company Number: FR-009507513-2005-12-1328

PATIENT
  Age: 56 Year
  Sex: Male

DRUGS (3)
  1. CELESTENE (BETAMETHASONE) [Suspect]
     Active Substance: BETAMETHASONE
     Indication: BRONCHITIS CHRONIC
     Dosage: DOSE: UNKNOWN, DURATION: 3 DAY(S)
     Route: 048
     Dates: start: 20051110, end: 20051112
  2. PNEUMOREL [Suspect]
     Active Substance: FENSPIRIDE HYDROCHLORIDE
     Dosage: DOSE: UNKNOWN, DURATION: 3 DAY(S)
     Route: 048
     Dates: start: 20051110, end: 20051112
  3. LYSANXIA [Suspect]
     Active Substance: PRAZEPAM
     Dosage: 1 DOSAGE FORM, QD
     Route: 048
     Dates: start: 20051110, end: 20051112

REACTIONS (3)
  - Dyspnoea [None]
  - Anaphylactic reaction [Recovered/Resolved]
  - Erythema [None]

NARRATIVE: CASE EVENT DATE: 20051112
